FAERS Safety Report 10736015 (Version 6)
Quarter: 2015Q3

REPORT INFORMATION
  Report Type: Report from Study
  Country: US (occurrence: US)
  Receive Date: 20150126
  Receipt Date: 20150730
  Transmission Date: 20151125
  Serious: Yes (Death, Hospitalization, Other)
  Sender: FDA-Public Use
  Company Number: US-ALEXION PHARMACEUTICALS INC.-A201500148

PATIENT

DRUGS (1)
  1. SOLIRIS [Suspect]
     Active Substance: ECULIZUMAB
     Indication: PAROXYSMAL NOCTURNAL HAEMOGLOBINURIA
     Dosage: UNK
     Route: 042

REACTIONS (15)
  - Dyspnoea [Not Recovered/Not Resolved]
  - Radiation pneumonitis [Unknown]
  - Dyspnoea [Unknown]
  - Death [Fatal]
  - Chronic obstructive pulmonary disease [Unknown]
  - Blood lactate dehydrogenase abnormal [Unknown]
  - Hospice care [Unknown]
  - Asthenia [Not Recovered/Not Resolved]
  - Pneumothorax [Unknown]
  - Pneumonia [Unknown]
  - Cellulitis [Unknown]
  - Influenza [Unknown]
  - Pleural effusion [Unknown]
  - Atrial fibrillation [Unknown]
  - Thrombosis [Not Recovered/Not Resolved]

NARRATIVE: CASE EVENT DATE: 201504
